FAERS Safety Report 6662837-8 (Version None)
Quarter: 2010Q2

REPORT INFORMATION
  Report Type: 
  Country: None (occurrence: None)
  Receive Date: 20100401
  Receipt Date: 20100324
  Transmission Date: 20101027
  Serious: No
  Sender: FDA-Public Use
  Company Number: 2009BI011004

PATIENT
  Sex: Male

DRUGS (1)
  1. TYSABRI [Suspect]
     Indication: MULTIPLE SCLEROSIS
     Route: 042
     Dates: start: 20071017

REACTIONS (6)
  - BALANCE DISORDER [None]
  - DRUG EFFECT DECREASED [None]
  - EYE DISORDER [None]
  - GAIT DISTURBANCE [None]
  - PARAESTHESIA [None]
  - SECONDARY PROGRESSIVE MULTIPLE SCLEROSIS [None]
